FAERS Safety Report 26161631 (Version 1)
Quarter: 2025Q4

REPORT INFORMATION
  Report Type: Spontaneous
  Country: US (occurrence: None)
  Receive Date: 20251216
  Receipt Date: 20251216
  Transmission Date: 20260118
  Serious: No
  Sender: UCB
  Company Number: US-UCBSA-2025066125

PATIENT
  Age: 79 Year

DRUGS (1)
  1. BIMZELX [Suspect]
     Active Substance: BIMEKIZUMAB-BKZX
     Indication: Psoriasis
     Dosage: 320 MILLIGRAM, EV 4 WEEKS

REACTIONS (8)
  - Adverse drug reaction [Unknown]
  - Candida infection [Unknown]
  - Headache [Unknown]
  - Alopecia [Unknown]
  - Agitation [Unknown]
  - Drug ineffective [Unknown]
  - Product distribution issue [Unknown]
  - Product storage error [Unknown]
